FAERS Safety Report 8116573-1 (Version None)
Quarter: 2012Q1

REPORT INFORMATION
  Report Type: 
  Country: None (occurrence: None)
  Receive Date: 20120131
  Receipt Date: 20120120
  Transmission Date: 20120608
  Serious: Yes (Life-Threatening, Hospitalization)
  Sender: FDA-Public Use
  Company Number: 2011S100641

PATIENT
  Age: 59 Year
  Sex: Male
  Weight: 46 kg

DRUGS (14)
  1. LANSOPRAZOLE [Suspect]
     Indication: PROPHYLAXIS AGAINST GASTROINTESTINAL ULCER
     Dosage: 15 MG;1X;PO
     Route: 048
     Dates: start: 20111005, end: 20111110
  2. ENALAPRIL MALEATE [Suspect]
     Indication: CARDIAC FAILURE CHRONIC
     Dosage: 2.5 MG;1X;PO ; 2.5 MG;1X;PO
     Route: 048
     Dates: start: 20111117, end: 20111124
  3. ENALAPRIL MALEATE [Suspect]
     Indication: CARDIAC FAILURE CHRONIC
     Dosage: 2.5 MG;1X;PO ; 2.5 MG;1X;PO
     Route: 048
     Dates: start: 20111011, end: 20111110
  4. LASIX [Suspect]
     Indication: CARDIAC FAILURE CHRONIC
     Dosage: PO ; PO
     Route: 048
     Dates: start: 20111116, end: 20111124
  5. LASIX [Suspect]
     Indication: CARDIAC FAILURE CHRONIC
     Dosage: PO ; PO
     Route: 048
     Dates: end: 20111110
  6. MAGNESIUM OXIDE (MAGNESIUM OXIDE) [Suspect]
     Indication: CONSTIPATION
     Dosage: 2 GM;TID;PO
     Route: 048
     Dates: start: 20111014, end: 20111110
  7. LIVALO [Suspect]
     Indication: HYPERCHOLESTEROLAEMIA
     Dosage: 1 MG;1X;PO
     Route: 048
     Dates: start: 20111026, end: 20111110
  8. PURSENNID /00142207/ (SENNA ALEXANDRINA LEAF) [Suspect]
     Indication: CONSTIPATION
     Dosage: 24 MG;BID;PO
     Route: 048
     Dates: start: 20111014, end: 20111110
  9. WARFARIN SODIUM [Suspect]
     Indication: THROMBOSIS PROPHYLAXIS
     Dosage: 3 MG;1X;PO
     Route: 048
     Dates: start: 20111015, end: 20111110
  10. PLAVIX [Suspect]
     Indication: CARDIOVASCULAR EVENT PROPHYLAXIS
     Dosage: 75 MG;1X;PO
     Route: 048
     Dates: start: 20111003, end: 20111110
  11. CELOOP (TEPRENONE) [Suspect]
     Indication: GASTRITIS PROPHYLAXIS
     Dosage: 50 MG;TID;PO
     Route: 048
     Dates: start: 20111013, end: 20111110
  12. CARVEDILOL [Suspect]
     Indication: CARDIAC FAILURE CHRONIC
     Dosage: 2.5 MG;BID;PO
     Route: 048
     Dates: start: 20111009, end: 20111110
  13. ASPIRIN [Suspect]
     Indication: MYOCARDIAL INFARCTION
     Dosage: 100 MG;1X;PO ; 100 MG;1X;PO
     Route: 048
     Dates: start: 20111003, end: 20111110
  14. ASPIRIN [Suspect]
     Indication: MYOCARDIAL INFARCTION
     Dosage: 100 MG;1X;PO ; 100 MG;1X;PO
     Route: 048
     Dates: start: 20111117, end: 20111124

REACTIONS (4)
  - PHARYNGOTONSILLITIS [None]
  - PYREXIA [None]
  - ORAL CANDIDIASIS [None]
  - GRANULOCYTOPENIA [None]
